FAERS Safety Report 9064470 (Version 1)
Quarter: 2013Q1

REPORT INFORMATION
  Report Type: Report from Study
  Country: DE (occurrence: DE)
  Receive Date: 20130128
  Receipt Date: 20130128
  Transmission Date: 20140127
  Serious: Yes (Other)
  Sender: FDA-Public Use
  Company Number: DE-UCBSA-076672

PATIENT
  Sex: Female

DRUGS (2)
  1. LEVETIRACETAM [Suspect]
     Indication: EPILEPSY
     Dosage: MAXIMUM SINGLE DOSE:1000 MG
     Dates: start: 20001231
  2. OXCARBAZEPINE [Suspect]
     Indication: EPILEPSY
     Dosage: MAXIMUM SINGLE DOSE:600 MG
     Dates: start: 19991231

REACTIONS (2)
  - Abortion induced [Unknown]
  - Pregnancy [Recovered/Resolved]
